FAERS Safety Report 7538398-8 (Version None)
Quarter: 2011Q2

REPORT INFORMATION
  Report Type: 
  Country: None (occurrence: None)
  Receive Date: 20110609
  Receipt Date: 20110525
  Transmission Date: 20111010
  Serious: Yes (Other)
  Sender: FDA-Public Use
  Company Number: JP-WATSON-2010-15967

PATIENT
  Sex: Male

DRUGS (4)
  1. RAPAFLO [Suspect]
     Indication: DYSURIA
     Dosage: 4 MG, BID
     Route: 048
     Dates: start: 20101109, end: 20101122
  2. LEUPROLIDE ACETATE [Concomitant]
     Indication: PROSTATE CANCER
     Dosage: 3.75 MG / MONTH
     Route: 058
     Dates: start: 20100928
  3. BICALUTAMIDE [Concomitant]
     Indication: PROSTATE CANCER
     Dosage: 80 MG, DAILY
     Route: 048
     Dates: start: 20101012, end: 20101129
  4. RAPAFLO [Suspect]
     Indication: BENIGN PROSTATIC HYPERPLASIA

REACTIONS (8)
  - HEPATIC FUNCTION ABNORMAL [None]
  - BLOOD BILIRUBIN INCREASED [None]
  - ALANINE AMINOTRANSFERASE INCREASED [None]
  - DECREASED APPETITE [None]
  - ASPARTATE AMINOTRANSFERASE INCREASED [None]
  - GAMMA-GLUTAMYLTRANSFERASE INCREASED [None]
  - DIZZINESS [None]
  - HEPATITIS FULMINANT [None]
